FAERS Safety Report 4914337-0 (Version None)
Quarter: 2006Q1

REPORT INFORMATION
  Report Type: 
  Country: None (occurrence: None)
  Receive Date: 20060213
  Receipt Date: 20060203
  Transmission Date: 20060701
  Serious: Yes (Hospitalization)
  Sender: FDA-Public Use
  Company Number: 012122

PATIENT
  Age: 53 Year
  Sex: Male

DRUGS (2)
  1. PRIALT [Suspect]
     Indication: NEURALGIA
     Dosage: 0.1 UG, ONCE/HOUR, INTRATHECAL
     Route: 037
     Dates: start: 20060203
  2. MORPHINE [Concomitant]

REACTIONS (4)
  - CHEST PAIN [None]
  - CONDITION AGGRAVATED [None]
  - DIPLEGIA [None]
  - PAIN [None]
